FAERS Safety Report 8536995-4 (Version None)
Quarter: 2012Q3

REPORT INFORMATION
  Report Type: 
  Country: None (occurrence: None)
  Receive Date: 20120713
  Receipt Date: 20120702
  Transmission Date: 20120928
  Serious: Yes (Other)
  Sender: FDA-Public Use
  Company Number: US-1192726

PATIENT
  Age: 63 Year
  Sex: Female

DRUGS (1)
  1. PROPYLENE GLYCOL [Suspect]
     Dosage: (OPHTHALMIC)
     Route: 048
     Dates: start: 20120101

REACTIONS (2)
  - CORNEAL ABRASION [None]
  - EYE INJURY [None]
